FAERS Safety Report 5949481-2 (Version None)
Quarter: 2008Q4

REPORT INFORMATION
  Report Type: 
  Country: None (occurrence: None)
  Receive Date: 20081112
  Receipt Date: 20081104
  Transmission Date: 20090506
  Serious: Yes (Other)
  Sender: FDA-Public Use
  Company Number: PHHY2008FR27119

PATIENT
  Sex: Male

DRUGS (7)
  1. PARLODEL [Suspect]
     Indication: PARKINSON'S DISEASE
     Dosage: 7.5 MG, QD
     Route: 048
     Dates: start: 19961029, end: 19970224
  2. PARLODEL [Suspect]
     Dosage: 15 MG, QD
     Route: 048
     Dates: start: 19970225, end: 20000605
  3. PARLODEL [Suspect]
     Dosage: 40 MG, QD
     Route: 048
     Dates: start: 20000606, end: 20001128
  4. PARLODEL [Suspect]
     Dosage: 50 MG, QD
     Route: 048
     Dates: start: 20001129, end: 20010205
  5. PARLODEL [Suspect]
     Dosage: 50 MG, QD
     Route: 048
     Dates: start: 20020527, end: 20030412
  6. PERGOLIDE MESYLATE [Suspect]
     Dosage: UNK
     Dates: start: 20010205, end: 20020526
  7. TRIVASTAL [Suspect]

REACTIONS (1)
  - PATHOLOGICAL GAMBLING [None]
